FAERS Safety Report 6926826-8 (Version None)
Quarter: 2010Q3

REPORT INFORMATION
  Report Type: 
  Country: None (occurrence: None)
  Receive Date: 20100816
  Receipt Date: 20100610
  Transmission Date: 20110219
  Serious: No
  Sender: FDA-Public Use
  Company Number: US-ABBOTT-10P-163-0650792-00

PATIENT
  Sex: Male
  Weight: 83.99 kg

DRUGS (1)
  1. SIMCOR [Suspect]
     Indication: HYPERLIPIDAEMIA
     Dosage: 500MG/20MG- 2 TABLETS DAILY AT BEDTIME
     Dates: start: 20091201

REACTIONS (1)
  - PROSTATIC SPECIFIC ANTIGEN INCREASED [None]
